FAERS Safety Report 6454614 (Version 17)
Quarter: 2014Q1

REPORT INFORMATION
  Report Type: Spontaneous
  Country: US (occurrence: US)
  Receive Date: 20071030
  Receipt Date: 20140109
  Transmission Date: 20141002
  Serious: Yes (Death, Hospitalization, Other)
  Sender: FDA-Public Use
  Company Number: PHEH2007US13902

PATIENT
  Age: 61 Year
  Sex: Female
  Weight: 60.77 kg

DRUGS (35)
  1. AREDIA [Suspect]
     Indication: BREAST CANCER
     Dosage: 90 MG
     Dates: start: 2000
  2. ZOMETA [Suspect]
     Indication: BREAST CANCER
  3. OXYCONTIN [Concomitant]
     Indication: BREAKTHROUGH PAIN
     Dosage: 20 MG,
     Route: 048
  4. SYNTHROID [Concomitant]
     Dosage: 0.15 MG, QD
     Route: 048
  5. FARESTON ^LAAKEFARMOS^ [Concomitant]
     Route: 048
  6. RESTORIL [Concomitant]
     Route: 048
  7. TYLENOL EXTRA-STRENGTH [Concomitant]
     Route: 048
  8. PERCOCET [Concomitant]
     Indication: BREAKTHROUGH PAIN
     Route: 048
  9. LASIX [Concomitant]
     Dosage: 40 MG, QD
  10. CARISOPRODOL [Concomitant]
  11. EFFEXOR [Concomitant]
     Dosage: 37.5 MG, QD
  12. AROMASIN [Concomitant]
     Indication: HORMONE REPLACEMENT THERAPY
  13. HERCEPTIN ^GENENTECH^ [Concomitant]
  14. REMERON [Concomitant]
     Dates: end: 20070621
  15. HORMONES [Concomitant]
  16. TAXOL [Concomitant]
     Dosage: 78 MG,
  17. HERCEPTIN ^GENENTECH^ [Concomitant]
     Dosage: 124 MG,
  18. ARIMIDEX ^ASTRAZENECA^ [Concomitant]
     Dosage: 1 MG, DAILY
     Route: 048
     Dates: start: 20000326
  19. TAXOTERE [Concomitant]
  20. XELODA [Concomitant]
  21. RADIATION [Concomitant]
     Dates: start: 200101
  22. RADIATION [Concomitant]
     Dates: start: 20000327, end: 20000508
  23. TEQUIN [Concomitant]
  24. TAMOXIFEN [Concomitant]
     Dates: start: 199910, end: 20000326
  25. SAMARIUM [153 SM] LEXIDRONAM PENTASODIUM [Concomitant]
     Dates: start: 20000426
  26. NORTRIPTYLINE [Concomitant]
  27. ENDOCET [Concomitant]
  28. GABAPENTIN [Concomitant]
  29. CYCLOBENZAPRINE [Concomitant]
  30. WARFARIN [Concomitant]
  31. NASAREL [Concomitant]
  32. ZINACEF                                 /UNK/ [Concomitant]
  33. DOCUSATE SODIUM [Concomitant]
  34. ZANTAC [Concomitant]
  35. COUMADINE [Concomitant]

REACTIONS (89)
  - Death [Fatal]
  - Osteonecrosis of jaw [Unknown]
  - Pain [Unknown]
  - Bone disorder [Unknown]
  - Deformity [Unknown]
  - Hypophagia [Unknown]
  - Emotional distress [Unknown]
  - Anxiety [Unknown]
  - Discomfort [Unknown]
  - Anhedonia [Unknown]
  - Life expectancy shortened [Unknown]
  - Pain in jaw [Unknown]
  - Dysphagia [Recovered/Resolved]
  - Pyrexia [Recovered/Resolved]
  - Iron deficiency anaemia [Unknown]
  - Pleural effusion [Unknown]
  - Pancreatitis acute [Unknown]
  - Depressive symptom [Unknown]
  - Fatigue [Unknown]
  - Bone pain [Unknown]
  - Anger [Unknown]
  - Fall [Unknown]
  - Scratch [Unknown]
  - Back pain [Unknown]
  - Oropharyngeal pain [Unknown]
  - Osteoporosis [Unknown]
  - Rash [Unknown]
  - Pruritus [Unknown]
  - Herpes zoster [Recovering/Resolving]
  - Cough [Unknown]
  - Dyspnoea [Unknown]
  - Abdominal pain [Unknown]
  - Gait disturbance [Unknown]
  - Confusional state [Unknown]
  - Agitation [Unknown]
  - Restlessness [Unknown]
  - Paranoia [Unknown]
  - Contusion [Unknown]
  - Hypoaesthesia [Unknown]
  - Intervertebral disc degeneration [Unknown]
  - Constipation [Unknown]
  - Pulmonary mass [Unknown]
  - Cholecystitis [Unknown]
  - Cholelithiasis [Unknown]
  - Hepatic steatosis [Unknown]
  - Hiatus hernia [Unknown]
  - Hypokalaemia [Unknown]
  - Arteriosclerosis [Unknown]
  - Gastrooesophageal reflux disease [Unknown]
  - Haematemesis [Unknown]
  - Haematochezia [Unknown]
  - Lobar pneumonia [Unknown]
  - Connective tissue disorder [Unknown]
  - Decreased appetite [Unknown]
  - Asthenia [Unknown]
  - Abdominal discomfort [Unknown]
  - Dysgeusia [Unknown]
  - Spinal osteoarthritis [Unknown]
  - Scoliosis [Unknown]
  - Metastases to liver [Unknown]
  - Hepatomegaly [Unknown]
  - Blood alkaline phosphatase increased [Unknown]
  - Nausea [Unknown]
  - Vomiting [Unknown]
  - Abdominal pain upper [Unknown]
  - Nasopharyngitis [Unknown]
  - Bronchitis [Unknown]
  - Neuropathy peripheral [Unknown]
  - Aspiration [Unknown]
  - Vitreous floaters [Unknown]
  - Abdominal tenderness [Unknown]
  - Pneumothorax [Unknown]
  - Metastases to bone [Unknown]
  - Pleural fibrosis [Unknown]
  - Rib deformity [Unknown]
  - Compression fracture [Unknown]
  - Bone deformity [Unknown]
  - Cardiomegaly [Unknown]
  - Hepatic cirrhosis [Unknown]
  - Rib fracture [Unknown]
  - Vertigo [Unknown]
  - Rhinitis [Unknown]
  - Aphasia [Unknown]
  - Gingival bleeding [Unknown]
  - Ear pain [Unknown]
  - Bruxism [Unknown]
  - Mouth breathing [Unknown]
  - Tooth loss [Unknown]
  - Sinus disorder [Unknown]
